FAERS Safety Report 16872986 (Version 1)
Quarter: 2019Q4

REPORT INFORMATION
  Report Type: Spontaneous
  Country: CZ (occurrence: CZ)
  Receive Date: 20191001
  Receipt Date: 20191001
  Transmission Date: 20200122
  Serious: Yes (Life-Threatening, Other)
  Sender: FDA-Public Use
  Company Number: CZ-MYLANLABS-2019M1090100

PATIENT
  Sex: Female

DRUGS (6)
  1. CAPECITABINE. [Suspect]
     Active Substance: CAPECITABINE
     Indication: ADENOCARCINOMA OF APPENDIX
  2. CAPECITABINE. [Suspect]
     Active Substance: CAPECITABINE
     Indication: METASTASES TO LUNG
  3. FLUOROURACIL. [Suspect]
     Active Substance: FLUOROURACIL
     Indication: MUCINOUS ADENOCARCINOMA OF APPENDIX
     Dosage: UNK
  4. FOLINIC ACID [Suspect]
     Active Substance: LEUCOVORIN
     Indication: MUCINOUS ADENOCARCINOMA OF APPENDIX
     Dosage: UNK
  5. OXALIPLATIN. [Suspect]
     Active Substance: OXALIPLATIN
     Indication: MUCINOUS ADENOCARCINOMA OF APPENDIX
     Dosage: UNK
  6. CAPECITABINE. [Suspect]
     Active Substance: CAPECITABINE
     Indication: MUCINOUS ADENOCARCINOMA OF APPENDIX
     Dosage: UNK

REACTIONS (1)
  - Haematotoxicity [Unknown]
